FAERS Safety Report 5725558-1 (Version None)
Quarter: 2008Q2

REPORT INFORMATION
  Report Type: 
  Country: None (occurrence: None)
  Receive Date: 20080501
  Receipt Date: 20080424
  Transmission Date: 20081010
  Serious: Yes (Other)
  Sender: FDA-Public Use
  Company Number: PHHY2008FI06495

PATIENT
  Sex: Female

DRUGS (1)
  1. EXELON [Suspect]
     Dosage: 4.6 MG/24 HOURS PATCHES
     Route: 062

REACTIONS (1)
  - MUSCLE TWITCHING [None]
